FAERS Safety Report 10866596 (Version 1)
Quarter: 2015Q1

REPORT INFORMATION
  Report Type: Spontaneous
  Country: BE (occurrence: None)
  Receive Date: 20150220
  Receipt Date: 20150220
  Transmission Date: 20150721
  Serious: Yes (Death, Hospitalization, Other)
  Sender: FDA-Public Use
  Company Number: 2015SCAL000042

PATIENT
  Age: 38 Year
  Sex: Female
  Weight: 65 kg

DRUGS (2)
  1. VERAPAMIL [Suspect]
     Active Substance: VERAPAMIL HYDROCHLORIDE
     Indication: PRODUCT USED FOR UNKNOWN INDICATION
  2. VENLAFAXINE HYDROCHLORIDE. [Suspect]
     Active Substance: VENLAFAXINE HYDROCHLORIDE
     Indication: PRODUCT USED FOR UNKNOWN INDICATION

REACTIONS (12)
  - Cardiogenic shock [None]
  - Atrioventricular block second degree [None]
  - Overdose [None]
  - Mydriasis [None]
  - Gastrointestinal necrosis [None]
  - Seizure [None]
  - Acute hepatic failure [None]
  - Intestinal ischaemia [None]
  - Coma [None]
  - Cardiac failure acute [None]
  - Acute respiratory distress syndrome [None]
  - Acute kidney injury [None]
